FAERS Safety Report 25784682 (Version 1)
Quarter: 2025Q3

REPORT INFORMATION
  Report Type: Spontaneous
  Country: US (occurrence: EU)
  Receive Date: 20250910
  Receipt Date: 20250910
  Transmission Date: 20251021
  Serious: Yes (Hospitalization, Other)
  Sender: WAYLIS THERAPEUTICS LLC
  Company Number: EU-WT-2025-32003-LIT-30

PATIENT
  Age: 34 Month
  Sex: Male

DRUGS (4)
  1. THIOGUANINE [Suspect]
     Active Substance: THIOGUANINE
     Route: 015
  2. DAUNORUBICIN [Suspect]
     Active Substance: DAUNORUBICIN
     Route: 015
  3. CYTARABINE [Suspect]
     Active Substance: CYTARABINE
     Route: 015
  4. LAMIVUDINE [Suspect]
     Active Substance: LAMIVUDINE
     Route: 015

REACTIONS (3)
  - Juvenile chronic myelomonocytic leukaemia [Recovered/Resolved]
  - PTPN11 gene mutation [Unknown]
  - Foetal exposure during pregnancy [Unknown]
